FAERS Safety Report 10098859 (Version 1)
Quarter: 2014Q2

REPORT INFORMATION
  Report Type: Spontaneous
  Country: CA (occurrence: CA)
  Receive Date: 20140423
  Receipt Date: 20140423
  Transmission Date: 20141212
  Serious: Yes (Other)
  Sender: FDA-Public Use
  Company Number: CA-ACTAVIS-2014-07732

PATIENT
  Age: 75 Year
  Sex: Female

DRUGS (4)
  1. GABAPENTIN (UNKNOWN) [Suspect]
     Indication: FIBROMYALGIA
     Dosage: 1800 MG, DAILY
     Route: 065
  2. GABAPENTIN (UNKNOWN) [Suspect]
     Indication: POST HERPETIC NEURALGIA
  3. LORAZEPAM [Concomitant]
     Indication: DEPRESSION
     Dosage: 3 MG, DAILY
     Route: 065
  4. SERTRALINE [Concomitant]
     Indication: DEPRESSION
     Dosage: 300 MG, DAILY
     Route: 065

REACTIONS (13)
  - Drug withdrawal syndrome [Recovered/Resolved]
  - Hypertension [Recovered/Resolved]
  - Chills [Recovered/Resolved]
  - Hyperhidrosis [Recovered/Resolved]
  - Abdominal pain [Recovered/Resolved]
  - Agitation [Recovered/Resolved]
  - Anxiety [Recovered/Resolved]
  - Insomnia [Recovered/Resolved]
  - Headache [Recovered/Resolved]
  - Nausea [Recovered/Resolved]
  - Decreased appetite [Recovered/Resolved]
  - Hypokalaemia [Recovered/Resolved]
  - Hepatic enzyme increased [Recovered/Resolved]
